FAERS Safety Report 10297852 (Version 1)
Quarter: 2014Q3

REPORT INFORMATION
  Report Type: Spontaneous
  Country: DE (occurrence: DE)
  Receive Date: 20140711
  Receipt Date: 20140711
  Transmission Date: 20150326
  Serious: Yes (Hospitalization)
  Sender: FDA-Public Use
  Company Number: DE-BAYER-2014-100193

PATIENT
  Age: 39 Year
  Sex: Female

DRUGS (17)
  1. LINEZOLID. [Concomitant]
     Active Substance: LINEZOLID
  2. CLARITHROMYCIN. [Suspect]
     Active Substance: CLARITHROMYCIN
     Indication: ATYPICAL PNEUMONIA
  3. TIGECYCLINE [Concomitant]
     Active Substance: TIGECYCLINE
  4. RIFAMPICIN [Suspect]
     Active Substance: RIFAMPIN
     Indication: LEGIONELLA TEST POSITIVE
  5. TAZOBACTAM [Suspect]
     Active Substance: TAZOBACTAM
     Indication: PNEUMOTHORAX
  6. MIDAZOLAM [Concomitant]
     Active Substance: MIDAZOLAM\MIDAZOLAM HYDROCHLORIDE
     Indication: GENERAL ANAESTHESIA
     Route: 055
  7. PROPOFOL. [Concomitant]
     Active Substance: PROPOFOL
     Indication: GENERAL ANAESTHESIA
     Route: 055
  8. MEROPENEM. [Concomitant]
     Active Substance: MEROPENEM
  9. PIPERACILLIN [Suspect]
     Active Substance: PIPERACILLIN
     Indication: PNEUMOTHORAX
  10. AMPICILLIN AND SULBACTAM [Concomitant]
     Active Substance: AMPICILLIN SODIUM\SULBACTAM SODIUM
     Indication: PROPHYLAXIS
     Route: 040
  11. MOXIFLOXACIN ORAL [Suspect]
     Active Substance: MOXIFLOXACIN
     Indication: LEGIONELLA TEST POSITIVE
  12. SEVOFLURANE. [Concomitant]
     Active Substance: SEVOFLURANE
     Indication: GENERAL ANAESTHESIA
     Route: 055
  13. IMIPENEM [Concomitant]
     Active Substance: IMIPENEM
     Indication: PATHOGEN RESISTANCE
  14. MOXIFLOXACIN ORAL [Suspect]
     Active Substance: MOXIFLOXACIN
     Indication: EVIDENCE BASED TREATMENT
  15. FENTANYL. [Concomitant]
     Active Substance: FENTANYL
     Indication: GENERAL ANAESTHESIA
     Route: 055
  16. OXYGEN. [Concomitant]
     Active Substance: OXYGEN
     Indication: GENERAL ANAESTHESIA
     Route: 055
  17. CEFTAZIDIME. [Concomitant]
     Active Substance: CEFTAZIDIME
     Indication: ATYPICAL PNEUMONIA

REACTIONS (1)
  - Eosinophilic pneumonia acute [Recovered/Resolved]
